FAERS Safety Report 24083514 (Version 1)
Quarter: 2024Q3

REPORT INFORMATION
  Report Type: Spontaneous
  Country: JP (occurrence: JP)
  Receive Date: 20240712
  Receipt Date: 20240712
  Transmission Date: 20241016
  Serious: Yes (Hospitalization)
  Sender: BOEHRINGER INGELHEIM
  Company Number: JP-NBI-2024-BI-038912

PATIENT
  Age: 35 Year
  Sex: Female

DRUGS (3)
  1. OFEV [Suspect]
     Active Substance: NINTEDANIB
     Indication: Pulmonary fibrosis
     Route: 065
  2. OFEV [Suspect]
     Active Substance: NINTEDANIB
     Indication: Scleroderma
  3. TADALAFIL [Concomitant]
     Active Substance: TADALAFIL
     Indication: Peripheral circulatory failure

REACTIONS (5)
  - Maternal exposure during pregnancy [Unknown]
  - Hypertensive nephropathy [Unknown]
  - HELLP syndrome [Unknown]
  - Low birth weight baby [Unknown]
  - Scleroderma renal crisis [Unknown]
